FAERS Safety Report 19232614 (Version 2)
Quarter: 2021Q2

REPORT INFORMATION
  Report Type: Spontaneous
  Country: US (occurrence: US)
  Receive Date: 20210507
  Receipt Date: 20210629
  Transmission Date: 20210717
  Serious: Yes (Other)
  Sender: FDA-Public Use
  Company Number: US-PFIZER INC-2021448701

PATIENT
  Age: 72 Year
  Sex: Female

DRUGS (5)
  1. CLOTRIMAZOLE. [Concomitant]
     Active Substance: CLOTRIMAZOLE
     Indication: VULVOVAGINAL INJURY
  2. PREMARIN [Suspect]
     Active Substance: ESTROGENS, CONJUGATED
     Indication: SKIN IRRITATION
  3. PREMARIN [Suspect]
     Active Substance: ESTROGENS, CONJUGATED
     Indication: INFECTION PROPHYLAXIS
     Dosage: APPLIED IT ON THE OUTSIDE
     Dates: start: 2017, end: 20210305
  4. PREMARIN [Suspect]
     Active Substance: ESTROGENS, CONJUGATED
     Indication: VULVOVAGINAL INJURY
  5. CLOTRIMAZOLE. [Concomitant]
     Active Substance: CLOTRIMAZOLE
     Indication: SKIN IRRITATION
     Dosage: UNK, 2X/WEEK

REACTIONS (8)
  - Urinary tract infection [Recovered/Resolved]
  - Vulvovaginal discomfort [Recovering/Resolving]
  - Product use issue [Unknown]
  - Off label use [Unknown]
  - Drug ineffective for unapproved indication [Unknown]
  - Drug hypersensitivity [Unknown]
  - Irritability [Unknown]
  - Vaginal discharge [Recovering/Resolving]

NARRATIVE: CASE EVENT DATE: 2017
